FAERS Safety Report 10784623 (Version 1)
Quarter: 2015Q1

REPORT INFORMATION
  Report Type: Spontaneous
  Country: US (occurrence: None)
  Receive Date: 20150209
  Receipt Date: 20150209
  Transmission Date: 20150721
  Serious: Yes (Hospitalization)
  Sender: FDA-Public Use
  Company Number: None

PATIENT
  Age: 43 Year
  Sex: Female

DRUGS (1)
  1. CHLORDIAZEPOXIDE CLIDINIUM [Suspect]
     Active Substance: CHLORDIAZEPOXIDE HYDROCHLORIDE\CLIDINIUM BROMIDE
     Indication: SENSATION OF FOREIGN BODY
     Dosage: 1 PILL FOUR TIMES DAILY TAKEN BY MOUTH
     Route: 048
     Dates: start: 20150113, end: 20150114

REACTIONS (7)
  - Dizziness [None]
  - Vertigo [None]
  - Gait disturbance [None]
  - Ear discomfort [None]
  - Feeling abnormal [None]
  - Vomiting [None]
  - Middle insomnia [None]

NARRATIVE: CASE EVENT DATE: 20150115
